FAERS Safety Report 8513542 (Version 3)
Quarter: 2012Q4

REPORT INFORMATION
  Report Type: Report from Study
  Country: HU (occurrence: HU)
  Receive Date: 20120416
  Receipt Date: 20120925
  Transmission Date: 20130627
  Serious: Yes (Hospitalization)
  Sender: FDA-Public Use
  Company Number: HU-JNJFOC-20120404399

PATIENT
  Age: 50 Year
  Sex: Female
  Weight: 57 kg

DRUGS (6)
  1. PALIPERIDONE PALMITATE [Suspect]
     Indication: SCHIZOPHRENIA
     Route: 030
     Dates: start: 20111202, end: 20120404
  2. PALIPERIDONE PALMITATE [Suspect]
     Indication: SCHIZOPHRENIA
     Route: 030
     Dates: start: 20110414, end: 20111103
  3. PALIPERIDONE PALMITATE [Suspect]
     Indication: SCHIZOPHRENIA
     Route: 030
     Dates: start: 20110407
  4. BIPERIDEN [Concomitant]
     Indication: AKATHISIA
     Route: 048
     Dates: start: 20110520, end: 20120405
  5. RIVOTRIL [Concomitant]
     Indication: ANXIETY
     Route: 048
     Dates: start: 20111225, end: 20120409
  6. RIVOTRIL [Concomitant]
     Indication: ANXIETY
     Route: 048
     Dates: start: 20110525

REACTIONS (1)
  - Schizophrenia [Recovered/Resolved]
